FAERS Safety Report 6664276-2 (Version None)
Quarter: 2010Q2

REPORT INFORMATION
  Report Type: 
  Country: None (occurrence: None)
  Receive Date: 20100401
  Receipt Date: 20100323
  Transmission Date: 20101027
  Serious: Yes (Other)
  Sender: FDA-Public Use
  Company Number: PHHY2010MX05863

PATIENT
  Age: 83 Year
  Sex: Female

DRUGS (2)
  1. ACLASTA [Suspect]
     Indication: OSTEOPOROSIS
     Dosage: 5 MG /100ML PER YEAR
     Route: 042
     Dates: start: 20090201
  2. DIACEREIN [Concomitant]

REACTIONS (1)
  - IMPAIRED HEALING [None]
